FAERS Safety Report 4364713-2 (Version None)
Quarter: 2004Q2

REPORT INFORMATION
  Report Type: 
  Country: None (occurrence: None)
  Receive Date: 20040525
  Receipt Date: 20040525
  Transmission Date: 20050107
  Serious: Yes (Disabling, Congenital Anomaly)
  Sender: FDA-Public Use
  Company Number: None

PATIENT
  Sex: Female
  Weight: 79.3795 kg

DRUGS (3)
  1. PAXIL [Suspect]
     Indication: ANXIETY
     Dosage: 20 MG ONCE DAILY ORAL
     Route: 048
     Dates: start: 20020101, end: 20040524
  2. PAXIL [Suspect]
     Indication: DEPRESSION
     Dosage: 20 MG ONCE DAILY ORAL
     Route: 048
     Dates: start: 20020101, end: 20040524
  3. PAXIL [Suspect]
     Indication: POST-TRAUMATIC STRESS DISORDER
     Dosage: 20 MG ONCE DAILY ORAL
     Route: 048
     Dates: start: 20020101, end: 20040524

REACTIONS (6)
  - HYPERHIDROSIS [None]
  - HYPOAESTHESIA [None]
  - NAUSEA [None]
  - NIGHT SWEATS [None]
  - PARAESTHESIA [None]
  - VERTIGO [None]
